FAERS Safety Report 8071677-7 (Version None)
Quarter: 2012Q1

REPORT INFORMATION
  Report Type: 
  Country: None (occurrence: None)
  Receive Date: 20120125
  Receipt Date: 20120112
  Transmission Date: 20120608
  Serious: Yes (Other)
  Sender: FDA-Public Use
  Company Number: CA-WATSON-2012-00448

PATIENT

DRUGS (3)
  1. RATIO-OXYCOCET [Concomitant]
     Indication: PAIN
     Dosage: 1 TABLET, PRN
     Route: 048
     Dates: start: 20120111
  2. PORTIA-28 [Concomitant]
     Indication: DYSMENORRHOEA
     Dosage: 2 TABLETS, AS DIRECTED
     Route: 048
     Dates: start: 20120111
  3. MELOXICAM [Suspect]
     Indication: PAIN
     Dosage: 15 MG, DAILY
     Route: 048
     Dates: start: 20120111, end: 20120111

REACTIONS (7)
  - EUPHORIC MOOD [None]
  - INSOMNIA [None]
  - FATIGUE [None]
  - SLUGGISHNESS [None]
  - ENERGY INCREASED [None]
  - SOMNOLENCE [None]
  - PSYCHOMOTOR HYPERACTIVITY [None]
